FAERS Safety Report 6140044-5 (Version None)
Quarter: 2009Q1

REPORT INFORMATION
  Report Type: 
  Country: None (occurrence: None)
  Receive Date: 20090330
  Receipt Date: 20090330
  Transmission Date: 20090719
  Serious: Yes (Hospitalization)
  Sender: FDA-Public Use
  Company Number: None

PATIENT
  Age: 57 Year
  Sex: Male

DRUGS (1)
  1. AMPHOTERICIN B [Suspect]
     Indication: COCCIDIOIDOMYCOSIS
     Dosage: 500 MG EVERY DAY IV
     Route: 042
     Dates: start: 20080917, end: 20081015

REACTIONS (1)
  - RENAL FAILURE ACUTE [None]
